FAERS Safety Report 16648378 (Version 2)
Quarter: 2019Q3

REPORT INFORMATION
  Report Type: Spontaneous
  Country: SE (occurrence: SE)
  Receive Date: 20190730
  Receipt Date: 20190809
  Transmission Date: 20191004
  Serious: Yes (Death)
  Sender: FDA-Public Use
  Company Number: SE-BAUSCH-BL-2019-021560

PATIENT
  Age: 3 Decade
  Sex: Female

DRUGS (5)
  1. KETOGAN [DIMETHYL-3,3-DIPHENYL-1-METHYLALLYLAMINE HCL;KETOBEMIDONE HYDROCHLORIDE] [Suspect]
     Active Substance: DIMETHYLAMINODIPHENYLBUTENE HYDROCHLORIDE\KETOBEMIDONE HYDROCHLORIDE
     Indication: SUICIDE ATTEMPT
     Route: 065
  2. DALACIN [Suspect]
     Active Substance: CLINDAMYCIN
     Indication: SUICIDE ATTEMPT
     Route: 065
  3. DUROFERON [Suspect]
     Active Substance: FERROUS SULFATE
     Indication: SUICIDE ATTEMPT
  4. DUROFERON [Suspect]
     Active Substance: FERROUS SULFATE
     Indication: INTENTIONAL OVERDOSE
     Dosage: (100 X 100 MG)
     Route: 065
  5. PROPAVAN [Suspect]
     Active Substance: PROPIOMAZINE
     Indication: SUICIDE ATTEMPT
     Route: 065

REACTIONS (2)
  - Completed suicide [Fatal]
  - Toxicity to various agents [Unknown]
